FAERS Safety Report 11165831 (Version 4)
Quarter: 2017Q4

REPORT INFORMATION
  Report Type: Spontaneous
  Country: DE (occurrence: DE)
  Receive Date: 20150604
  Receipt Date: 20171208
  Transmission Date: 20180320
  Serious: Yes (Life-Threatening, Hospitalization, Other)
  Sender: FDA-Public Use
  Company Number: DE-B.I. PHARMACEUTICALS,INC./RIDGEFIELD-2015-BI-29662DE

PATIENT
  Age: 65 Year
  Sex: Female
  Weight: 72 kg

DRUGS (5)
  1. GILOTRIF [Suspect]
     Active Substance: AFATINIB
     Route: 065
     Dates: start: 201710
  2. GILOTRIF [Suspect]
     Active Substance: AFATINIB
     Route: 065
     Dates: start: 201506
  3. DENOSUMAB [Concomitant]
     Active Substance: DENOSUMAB
     Indication: PRODUCT USED FOR UNKNOWN INDICATION
     Route: 065
     Dates: start: 201504
  4. GILOTRIF [Suspect]
     Active Substance: AFATINIB
     Indication: LUNG CARCINOMA CELL TYPE UNSPECIFIED STAGE II
     Route: 065
     Dates: start: 201509, end: 201610
  5. GILOTRIF [Suspect]
     Active Substance: AFATINIB
     Indication: EGFR GENE MUTATION
     Dosage: DAILY DOSE: 30 MG MILLIGRAM(S) EVERY DAY
     Route: 048
     Dates: start: 20150501, end: 201505

REACTIONS (14)
  - Large intestine perforation [Not Recovered/Not Resolved]
  - Metastatic bronchial carcinoma [Unknown]
  - Diverticulitis [Not Recovered/Not Resolved]
  - Malignant neoplasm progression [Unknown]
  - Abdominal discomfort [Unknown]
  - Diarrhoea [Unknown]
  - Haematochezia [Unknown]
  - Ilium fracture [Unknown]
  - Pleural effusion [Unknown]
  - Peritonitis [Unknown]
  - Cardiovascular insufficiency [Unknown]
  - Pulmonary embolism [Unknown]
  - Fall [Unknown]
  - Pneumonia [Unknown]

NARRATIVE: CASE EVENT DATE: 20150513
